FAERS Safety Report 6655032-X (Version None)
Quarter: 2010Q1

REPORT INFORMATION
  Report Type: 
  Country: None (occurrence: None)
  Receive Date: 20100329
  Receipt Date: 20091218
  Transmission Date: 20100710
  Serious: Yes (Death)
  Sender: FDA-Public Use
  Company Number: BE-JNJFOC-20090205763

PATIENT
  Sex: Female

DRUGS (7)
  1. TAVANIC [Suspect]
     Indication: RESPIRATORY TRACT INFECTION
     Route: 048
  2. NEUROLEPTICS [Interacting]
     Indication: DRUG USE FOR UNKNOWN INDICATION
     Route: 065
  3. ANTIFUNGAL NOS [Interacting]
     Indication: DRUG USE FOR UNKNOWN INDICATION
     Route: 065
  4. RISPERDAL [Concomitant]
     Indication: ANGER
     Dosage: 2X3 MG
     Route: 065
  5. RISPERDAL [Concomitant]
     Indication: ABNORMAL BEHAVIOUR
     Dosage: 2X3 MG
     Route: 065
  6. DIFLUCAN [Concomitant]
     Indication: FUNGAL INFECTION
     Route: 065
  7. SIPRALEXA [Concomitant]
     Indication: DRUG USE FOR UNKNOWN INDICATION
     Route: 065

REACTIONS (2)
  - DRUG INTERACTION [None]
  - SHOCK [None]
